FAERS Safety Report 10878843 (Version 1)
Quarter: 2015Q1

REPORT INFORMATION
  Report Type: Spontaneous
  Country: US (occurrence: None)
  Receive Date: 20150225
  Receipt Date: 20150225
  Transmission Date: 20150721
  Serious: Yes (Hospitalization)
  Sender: FDA-Public Use
  Company Number: UCM201502-000136

PATIENT
  Age: 60 Year
  Sex: Female

DRUGS (6)
  1. LISINOPRIL. [Concomitant]
     Active Substance: LISINOPRIL
  2. AMITRIPTYLINE [Suspect]
     Active Substance: AMITRIPTYLINE
     Indication: DEPRESSION
  3. METOPROLOL [Concomitant]
     Active Substance: METOPROLOL
  4. CLONIDINE HCL [Suspect]
     Active Substance: CLONIDINE HYDROCHLORIDE
     Indication: HYPERTENSION
  5. BUPRENORPHINE/NALOXONE [Concomitant]
     Active Substance: BUPRENORPHINE\NALOXONE
  6. LABETALOL [Concomitant]
     Active Substance: LABETALOL\LABETALOL HYDROCHLORIDE

REACTIONS (21)
  - Drug dependence [None]
  - Cerebral atrophy [None]
  - Headache [None]
  - Hallucination [None]
  - Drug abuse [None]
  - Loss of consciousness [None]
  - Withdrawal hypertension [None]
  - Fall [None]
  - Hypotension [None]
  - Mental status changes [None]
  - Therapy cessation [None]
  - Encephalomalacia [None]
  - Lacunar infarction [None]
  - Head injury [None]
  - Hypertensive crisis [None]
  - Cerebellar atrophy [None]
  - Nausea [None]
  - Acute kidney injury [None]
  - Refusal of treatment by patient [None]
  - Vomiting [None]
  - Treatment noncompliance [None]
